FAERS Safety Report 5611762-X (Version None)
Quarter: 2008Q1

REPORT INFORMATION
  Report Type: 
  Country: None (occurrence: None)
  Receive Date: 20080128
  Receipt Date: 20080114
  Transmission Date: 20080703
  Serious: Yes (Death)
  Sender: FDA-Public Use
  Company Number: 000#8#2008-00011

PATIENT
  Age: 45 Year
  Sex: Male

DRUGS (1)
  1. NITROGLYCERIN [Suspect]
     Indication: PULMONARY OEDEMA
     Dosage: 50 MG
     Route: 040

REACTIONS (3)
  - ACCIDENTAL OVERDOSE [None]
  - CEREBRAL INFARCTION [None]
  - HYPOTENSION [None]
